FAERS Safety Report 4642701-6 (Version None)
Quarter: 2005Q2

REPORT INFORMATION
  Report Type: 
  Country: None (occurrence: None)
  Receive Date: 20050422
  Receipt Date: 20050131
  Transmission Date: 20051028
  Serious: Yes (Hospitalization)
  Sender: FDA-Public Use
  Company Number: PHBS2005JP01827

PATIENT
  Age: 75 Year
  Sex: Male

DRUGS (8)
  1. DIOVAN [Suspect]
     Indication: CARDIAC FAILURE
     Dosage: 80 MG/DAY
     Route: 048
     Dates: start: 20041210, end: 20050122
  2. ASPIRIN [Suspect]
     Dosage: 100 MG/DAY
     Route: 048
     Dates: start: 20041020, end: 20050131
  3. ARTIST [Suspect]
     Dosage: 2.5 MG/DAY
     Route: 048
     Dates: start: 20041022, end: 20050128
  4. LASIX [Suspect]
     Dosage: 40 MG/DAY
     Route: 048
     Dates: start: 20041022, end: 20050131
  5. ZYLORIC [Suspect]
     Route: 048
  6. WARFARIN SODIUM [Suspect]
     Dosage: 4 MG/DAY
     Route: 048
     Dates: start: 20041124, end: 20050122
  7. GASTROM [Suspect]
  8. INNOLET N [Suspect]

REACTIONS (8)
  - ALANINE AMINOTRANSFERASE INCREASED [None]
  - ASPARTATE AMINOTRANSFERASE INCREASED [None]
  - BLOOD LACTATE DEHYDROGENASE INCREASED [None]
  - EYELID OEDEMA [None]
  - GAMMA-GLUTAMYLTRANSFERASE INCREASED [None]
  - HEPATIC FUNCTION ABNORMAL [None]
  - PLATELET COUNT DECREASED [None]
  - RASH GENERALISED [None]
